FAERS Safety Report 19075720 (Version 3)
Quarter: 2024Q3

REPORT INFORMATION
  Report Type: Spontaneous
  Country: DE (occurrence: DE)
  Receive Date: 20210331
  Receipt Date: 20240801
  Transmission Date: 20241016
  Serious: Yes (Hospitalization)
  Sender: AUROBINDO
  Company Number: DE-AUROBINDO-AUR-APL-2021-012411

PATIENT
  Age: 46 Year
  Sex: Female

DRUGS (10)
  1. CLOZAPINE [Suspect]
     Active Substance: CLOZAPINE
     Indication: Psychotic symptom
     Dosage: 400 MILLIGRAM (INITIAL DOSE; DOSE EVENTUALLY INCREASED UP TO 1000MG )
     Route: 048
  2. CLOZAPINE [Suspect]
     Active Substance: CLOZAPINE
     Dosage: 1000 MILLIGRAM
     Route: 048
  3. OLANZAPINE [Suspect]
     Active Substance: OLANZAPINE
     Indication: Psychotic symptom
     Dosage: 25 MILLIGRAM
     Route: 048
  4. QUETIAPINE [Suspect]
     Active Substance: QUETIAPINE
     Indication: Psychotic symptom
     Dosage: 1400 MILLIGRAM
     Route: 048
  5. FLUVOXAMINE [Concomitant]
     Active Substance: FLUVOXAMINE
     Indication: Product used for unknown indication
     Dosage: 150 MILLIGRAM
     Route: 065
  6. MIRTAZAPINE [Concomitant]
     Active Substance: MIRTAZAPINE
     Indication: Electroconvulsive therapy
     Dosage: 45 MILLIGRAM
     Route: 048
  7. MIRTAZAPINE [Concomitant]
     Active Substance: MIRTAZAPINE
     Indication: Depression
  8. AMISULPRIDE [Concomitant]
     Active Substance: AMISULPRIDE
     Indication: Product used for unknown indication
     Dosage: 400 MILLIGRAM
     Route: 065
  9. SERTRALINE [Concomitant]
     Active Substance: SERTRALINE HYDROCHLORIDE
     Indication: Product used for unknown indication
     Dosage: 200 MILLIGRAM (FOR TWO MONTHS)
     Route: 065
  10. SERTINDOLE [Concomitant]
     Active Substance: SERTINDOLE
     Indication: Electroconvulsive therapy
     Dosage: 12 MILLIGRAM
     Route: 065

REACTIONS (2)
  - Obsessive-compulsive symptom [Recovered/Resolved]
  - Condition aggravated [Recovered/Resolved]
